FAERS Safety Report 17174166 (Version 1)
Quarter: 2019Q4

REPORT INFORMATION
  Report Type: Spontaneous
  Country: US (occurrence: US)
  Receive Date: 20191219
  Receipt Date: 20191219
  Transmission Date: 20200122
  Serious: No
  Sender: FDA-Public Use
  Company Number: US-ELI_LILLY_AND_COMPANY-US201912003279

PATIENT
  Age: 63 Year
  Sex: Female

DRUGS (2)
  1. IXEKIZUMAB [Suspect]
     Active Substance: IXEKIZUMAB
     Indication: RHEUMATOID ARTHRITIS
     Dosage: 80 UG, UNKNOWN
     Route: 058
  2. MOTRIN [Concomitant]
     Active Substance: IBUPROFEN
     Indication: PAIN

REACTIONS (10)
  - Depressed mood [Unknown]
  - Back pain [Unknown]
  - Product dose omission [Unknown]
  - Off label use [Unknown]
  - Inflammation [Unknown]
  - Pain in extremity [Unknown]
  - Burning sensation [Unknown]
  - Malaise [Unknown]
  - Nervousness [Unknown]
  - Feeling abnormal [Unknown]
